FAERS Safety Report 25701342 (Version 1)
Quarter: 2025Q3

REPORT INFORMATION
  Report Type: Spontaneous
  Country: US (occurrence: None)
  Receive Date: 20250819
  Receipt Date: 20250819
  Transmission Date: 20251021
  Serious: Yes (Hospitalization)
  Sender: FDA-CTU
  Company Number: None

PATIENT
  Age: 42 Year
  Sex: Female

DRUGS (1)
  1. BIMZELX [Suspect]
     Active Substance: BIMEKIZUMAB-BKZX
     Indication: Hidradenitis
     Dosage: 320 MG EVEY 2 WEEKS SUBCUTANEOUS?
     Route: 058
     Dates: start: 20250808

REACTIONS (10)
  - Eye pruritus [None]
  - Eye inflammation [None]
  - Foreign body sensation in eyes [None]
  - Vision blurred [None]
  - Chest pain [None]
  - Gastrooesophageal reflux disease [None]
  - Nausea [None]
  - Vomiting [None]
  - Blood pressure increased [None]
  - Vascular rupture [None]

NARRATIVE: CASE EVENT DATE: 20250808
